FAERS Safety Report 15780686 (Version 1)
Quarter: 2019Q1

REPORT INFORMATION
  Report Type: Spontaneous
  Country: ES (occurrence: ES)
  Receive Date: 20190102
  Receipt Date: 20190102
  Transmission Date: 20190417
  Serious: Yes (Life-Threatening, Hospitalization, Other)
  Sender: FDA-Public Use
  Company Number: ES-AUROBINDO-AUR-APL-2018-063757

PATIENT
  Age: 79 Year
  Sex: Female

DRUGS (1)
  1. CAPECITABINE. [Suspect]
     Active Substance: CAPECITABINE
     Indication: BREAST CANCER
     Dosage: 2600 MILLIGRAM, DAILY
     Route: 065

REACTIONS (21)
  - Neutropenia [Unknown]
  - Hypoproteinaemia [Unknown]
  - Nausea [Unknown]
  - International normalised ratio increased [Unknown]
  - Hypophosphataemia [Unknown]
  - Asthenia [Unknown]
  - Alopecia [Recovered/Resolved]
  - Diarrhoea [Unknown]
  - Hypokalaemia [Unknown]
  - Weight decreased [Unknown]
  - Leukopenia [Unknown]
  - Palmar-plantar erythrodysaesthesia syndrome [Recovered/Resolved]
  - Dysphagia [Unknown]
  - Haematotoxicity [Unknown]
  - Toxicity to various agents [Unknown]
  - Hypocalcaemia [Unknown]
  - Odynophagia [Unknown]
  - Thrombocytopenia [Recovering/Resolving]
  - Mucosal inflammation [Unknown]
  - Hypomagnesaemia [Unknown]
  - Anaemia [Unknown]
